FAERS Safety Report 5957023-0 (Version None)
Quarter: 2008Q4

REPORT INFORMATION
  Report Type: 
  Country: None (occurrence: None)
  Receive Date: 20081118
  Receipt Date: 20080911
  Transmission Date: 20090506
  Serious: No
  Sender: FDA-Public Use
  Company Number: A0747052A

PATIENT
  Age: 45 Year
  Sex: Female

DRUGS (3)
  1. COREG CR [Suspect]
     Indication: HYPERTENSION
     Dosage: 40MG PER DAY
     Route: 048
     Dates: start: 20080910
  2. VERAPAMIL [Concomitant]
  3. DIURETIC [Concomitant]

REACTIONS (1)
  - ABDOMINAL PAIN UPPER [None]
